FAERS Safety Report 4969502-3 (Version None)
Quarter: 2006Q1

REPORT INFORMATION
  Report Type: 
  Country: None (occurrence: None)
  Receive Date: 20060328
  Receipt Date: 20060316
  Transmission Date: 20060701
  Serious: Yes (Other)
  Sender: FDA-Public Use
  Company Number: 2005BH002934

PATIENT
  Age: 32 Year
  Sex: Male
  Weight: 111.1313 kg

DRUGS (3)
  1. POLYGAM S/D [Suspect]
     Indication: MYASTHENIA GRAVIS
     Dosage: 20 GM;EVERY DAY;IV
     Route: 042
     Dates: start: 20051027, end: 20051029
  2. POLYGAM S/D [Suspect]
  3. MESTINON [Concomitant]

REACTIONS (5)
  - ABDOMINAL DISCOMFORT [None]
  - MENINGITIS ASEPTIC [None]
  - MUSCLE ATROPHY [None]
  - MUSCLE CONTRACTIONS INVOLUNTARY [None]
  - OCULAR MYASTHENIA [None]
